FAERS Safety Report 19571298 (Version 1)
Quarter: 2021Q3

REPORT INFORMATION
  Report Type: Spontaneous
  Country: IN (occurrence: IN)
  Receive Date: 20210715
  Receipt Date: 20210715
  Transmission Date: 20211014
  Serious: Yes (Other)
  Sender: FDA-Public Use
  Company Number: NVSC2021IN150284

PATIENT
  Age: 69 Year
  Sex: Female

DRUGS (4)
  1. SHELCAL [Concomitant]
     Active Substance: CALCIUM CARBONATE\CHOLECALCIFEROL
     Indication: PRODUCT USED FOR UNKNOWN INDICATION
     Dosage: 1 DF, QD (1 MONTH AFTER BREAKFAST)
     Route: 065
  2. FULVESTRANT. [Suspect]
     Active Substance: FULVESTRANT
     Indication: PRODUCT USED FOR UNKNOWN INDICATION
     Dosage: UNK
     Route: 030
     Dates: start: 20200904
  3. FEMARA [Suspect]
     Active Substance: LETROZOLE
     Indication: BREAST CANCER METASTATIC
     Dosage: UNK
     Route: 065
  4. VITCOFOL [Concomitant]
     Indication: PRODUCT USED FOR UNKNOWN INDICATION
     Dosage: 1 DF, BID ((1 MONTH AFTER BREAKFAST))
     Route: 065

REACTIONS (5)
  - Back pain [Unknown]
  - Cytopenia [Unknown]
  - Therapeutic product effect decreased [Unknown]
  - Invasive ductal breast carcinoma [Unknown]
  - Metastatic neoplasm [Unknown]
